FAERS Safety Report 7562702-8 (Version None)
Quarter: 2011Q2

REPORT INFORMATION
  Report Type: 
  Country: None (occurrence: None)
  Receive Date: 20110622
  Receipt Date: 20110617
  Transmission Date: 20111010
  Serious: Yes (Hospitalization, Other)
  Sender: FDA-Public Use
  Company Number: US-PFIZER INC-2009262095

PATIENT
  Sex: Female

DRUGS (4)
  1. CHANTIX [Suspect]
     Indication: SMOKING CESSATION THERAPY
     Dosage: STARTER PACK AND CONTINUED THERAPY
     Route: 048
     Dates: start: 20070325, end: 20070428
  2. PAXIL [Concomitant]
     Indication: DEPRESSION
     Dosage: 15 MG, UNK
     Dates: start: 20010101, end: 20080301
  3. LUNESTA [Concomitant]
     Indication: INSOMNIA
     Dosage: 2 MG, UNK
     Dates: start: 20050101
  4. CHANTIX [Suspect]
     Dosage: STARTER PACK AND CONTINUED THERAPY
     Route: 048
     Dates: start: 20071219, end: 20080106

REACTIONS (5)
  - SUICIDE ATTEMPT [None]
  - PAIN [None]
  - EMOTIONAL DISTRESS [None]
  - DEPRESSION [None]
  - DEFORMITY [None]
